FAERS Safety Report 7164637-1 (Version None)
Quarter: 2010Q4

REPORT INFORMATION
  Report Type: 
  Country: None (occurrence: None)
  Receive Date: 20101215
  Receipt Date: 20101210
  Transmission Date: 20110411
  Serious: Yes (Death)
  Sender: FDA-Public Use
  Company Number: JP-BRACCO-004341

PATIENT
  Age: 90 Year
  Sex: Male

DRUGS (3)
  1. IOPAMIDOL [Suspect]
     Indication: HAEMATOMA
     Route: 042
     Dates: start: 20101127, end: 20101127
  2. IOPAMIDOL [Suspect]
     Indication: COMPUTERISED TOMOGRAM
     Route: 042
     Dates: start: 20101127, end: 20101127
  3. IOPAMIDOL [Suspect]
     Indication: FALL
     Route: 042
     Dates: start: 20101127, end: 20101127

REACTIONS (2)
  - LOSS OF CONSCIOUSNESS [None]
  - RESPIRATORY ARREST [None]
